FAERS Safety Report 23478292 (Version 1)
Quarter: 2024Q1

REPORT INFORMATION
  Report Type: Spontaneous
  Country: IN (occurrence: IN)
  Receive Date: 20240204
  Receipt Date: 20240204
  Transmission Date: 20240410
  Serious: No
  Sender: FDA-Public Use
  Company Number: IN-EXELIXIS-CABO-23070483

PATIENT
  Age: 20 Year
  Sex: Male

DRUGS (2)
  1. CABOMETYX [Suspect]
     Active Substance: CABOZANTINIB S-MALATE
     Indication: Adenocarcinoma
     Dosage: UNK (LOW DOSE)
  2. NIVOLUMAB [Suspect]
     Active Substance: NIVOLUMAB
     Indication: Adenocarcinoma
     Dosage: UNK (LOW DOSE)

REACTIONS (1)
  - Drug effective for unapproved indication [Unknown]
